FAERS Safety Report 21811896 (Version 2)
Quarter: 2023Q4

REPORT INFORMATION
  Report Type: Spontaneous
  Country: FR (occurrence: None)
  Receive Date: 20230103
  Receipt Date: 20231207
  Transmission Date: 20240109
  Serious: Yes (Other)
  Sender: FDA-Public Use
  Company Number: 2022A416733

PATIENT
  Age: 56 Year
  Sex: Female
  Weight: 82 kg

DRUGS (5)
  1. FASLODEX [Suspect]
     Active Substance: FULVESTRANT
     Indication: Breast cancer
     Route: 030
     Dates: start: 202204
  2. IBRANCE [Suspect]
     Active Substance: PALBOCICLIB
     Indication: Breast cancer
     Dosage: 21D/28D
     Route: 048
     Dates: start: 202210
  3. LEVOTHYROXINE [Suspect]
     Active Substance: LEVOTHYROXINE
     Indication: Breast cancer
     Dosage: 112UG/INHAL DAILY
     Route: 048
     Dates: start: 202106
  4. OXAZEPAM [Suspect]
     Active Substance: OXAZEPAM
     Indication: Anxiety
     Route: 048
     Dates: start: 2019
  5. SPAGULAX [Suspect]
     Active Substance: HERBALS\PLANTAGO OVATA SEED
     Indication: Constipation
     Route: 048
     Dates: start: 202204

REACTIONS (2)
  - Condition aggravated [Not Recovered/Not Resolved]
  - Hirsutism [Not Recovered/Not Resolved]

NARRATIVE: CASE EVENT DATE: 20221001
